FAERS Safety Report 25178005 (Version 1)
Quarter: 2025Q2

REPORT INFORMATION
  Report Type: Spontaneous
  Country: US (occurrence: US)
  Receive Date: 20250409
  Receipt Date: 20250409
  Transmission Date: 20250717
  Serious: No
  Sender: KVK-TECH
  Company Number: US-KVK-TECH, INC-20250100004

PATIENT

DRUGS (1)
  1. PHENTERMINE HYDROCHLORIDE [Suspect]
     Active Substance: PHENTERMINE HYDROCHLORIDE
     Indication: Product used for unknown indication
     Route: 065

REACTIONS (5)
  - Dyspepsia [Unknown]
  - Hypertension [Unknown]
  - Withdrawal syndrome [Unknown]
  - Constipation [Unknown]
  - Therapeutic response unexpected [Unknown]
